FAERS Safety Report 21412140 (Version 1)
Quarter: 2022Q4

REPORT INFORMATION
  Report Type: Spontaneous
  Country: US (occurrence: US)
  Receive Date: 20221005
  Receipt Date: 20221005
  Transmission Date: 20230112
  Serious: Yes (Hospitalization, Disabling, Other)
  Sender: FDA-Public Use
  Company Number: US-009507513-1512USA011352

PATIENT
  Sex: Female

DRUGS (2)
  1. FOSAMAX [Suspect]
     Active Substance: ALENDRONATE SODIUM
     Indication: Osteoporosis
     Dosage: 10 MG, QD
     Route: 048
     Dates: start: 199511, end: 199912
  2. FOSAMAX [Suspect]
     Active Substance: ALENDRONATE SODIUM
     Indication: Osteoporosis
     Dosage: 70 MG, QW
     Route: 048
     Dates: start: 200002, end: 200909

REACTIONS (24)
  - Cervical vertebral fracture [Unknown]
  - Femur fracture [Recovered/Resolved]
  - Osteoporosis [Unknown]
  - Femur fracture [Recovered/Resolved]
  - Pain in extremity [Unknown]
  - Upper limb fracture [Unknown]
  - Fall [Unknown]
  - Dizziness [Unknown]
  - Hand fracture [Unknown]
  - Wrist fracture [Unknown]
  - Fall [Unknown]
  - Tooth extraction [Unknown]
  - Hypertension [Unknown]
  - Ovarian operation [Unknown]
  - Urinary tract infection [Unknown]
  - Hyponatraemia [Recovering/Resolving]
  - Atrial fibrillation [Unknown]
  - Synovial cyst [Unknown]
  - Osteoarthritis [Unknown]
  - Hernia [Unknown]
  - Hernia [Unknown]
  - Bone disorder [Unknown]
  - Spinal stenosis [Unknown]
  - Greater trochanteric pain syndrome [Not Recovered/Not Resolved]

NARRATIVE: CASE EVENT DATE: 20040101
